FAERS Safety Report 6924890-3 (Version None)
Quarter: 2010Q3

REPORT INFORMATION
  Report Type: 
  Country: None (occurrence: None)
  Receive Date: 20100816
  Receipt Date: 20100806
  Transmission Date: 20110219
  Serious: Yes (Other)
  Sender: FDA-Public Use
  Company Number: PT-ASTRAZENECA-2010SE36924

PATIENT
  Age: 35 Year
  Sex: Female

DRUGS (11)
  1. BUPIVACAINE HCL [Suspect]
     Indication: NERVE BLOCK
     Route: 037
  2. LEVOBUPIVACAINE [Suspect]
     Indication: SPINAL ANAESTHESIA
     Route: 037
  3. LEVOBUPIVACAINE [Suspect]
     Indication: EPIDURAL ANAESTHESIA
     Route: 037
  4. LEVOBUPIVACAINE [Suspect]
     Route: 008
  5. LEVOBUPIVACAINE [Suspect]
     Route: 008
  6. SUFENTANIL [Suspect]
     Indication: SPINAL ANAESTHESIA
     Route: 037
  7. SUFENTANIL [Suspect]
     Indication: EPIDURAL ANAESTHESIA
     Route: 037
  8. SUFENTANIL [Suspect]
     Route: 008
  9. SUFENTANIL [Suspect]
     Route: 008
  10. SUFENTANIL [Suspect]
     Route: 037
  11. SUFENTANIL [Suspect]
     Route: 037

REACTIONS (2)
  - DYSPNOEA [None]
  - SPINAL ANAESTHESIA [None]
